FAERS Safety Report 13531206 (Version 1)
Quarter: 2017Q2

REPORT INFORMATION
  Report Type: Spontaneous
  Country: US (occurrence: US)
  Receive Date: 20170510
  Receipt Date: 20170510
  Transmission Date: 20170830
  Serious: Yes (Life-Threatening)
  Sender: FDA-Public Use
  Company Number: None

PATIENT
  Age: 85 Year
  Sex: Male
  Weight: 71.28 kg

DRUGS (8)
  1. ASPIRIN. [Concomitant]
     Active Substance: ASPIRIN
  2. VITAMIN [Concomitant]
     Active Substance: VITAMINS
  3. ACETAMINOPHEN. [Concomitant]
     Active Substance: ACETAMINOPHEN
  4. STOOL SOFTENER (DOCUSATE) [Concomitant]
     Active Substance: DOCUSATE
  5. CLOPIDOGREL 75MG TABLET, 75 MG TEVA PHARMACEUTICALS [Suspect]
     Active Substance: CLOPIDOGREL BISULFATE
     Indication: HEART VALVE REPLACEMENT
     Dosage: ?          QUANTITY:L/;?
     Route: 048
     Dates: start: 20170420, end: 20170424
  6. METAMUCIL [Concomitant]
     Active Substance: PLANTAGO SEED
  7. FINASTERIDE. [Concomitant]
     Active Substance: FINASTERIDE
  8. LIPITOR [Concomitant]
     Active Substance: ATORVASTATIN CALCIUM

REACTIONS (2)
  - Swollen tongue [None]
  - Rash [None]

NARRATIVE: CASE EVENT DATE: 20170422
